FAERS Safety Report 21659993 (Version 1)
Quarter: 2022Q4

REPORT INFORMATION
  Report Type: Spontaneous
  Country: US (occurrence: US)
  Receive Date: 20221130
  Receipt Date: 20221130
  Transmission Date: 20230113
  Serious: Yes (Other)
  Sender: FDA-Public Use
  Company Number: US-AVET LIFESCIENCES LTD-2022-AVET-000209

PATIENT
  Age: 25 Year
  Sex: Male

DRUGS (6)
  1. METHIMAZOLE [Suspect]
     Active Substance: METHIMAZOLE
     Indication: Thyrotoxic periodic paralysis
     Dosage: 5 MG DAILY
  2. METHIMAZOLE [Suspect]
     Active Substance: METHIMAZOLE
     Indication: Basedow^s disease
  3. PROPRANOLOL [Concomitant]
     Active Substance: PROPRANOLOL HYDROCHLORIDE
     Indication: Thyrotoxic periodic paralysis
     Dosage: 20 MILLIGRAM, 3 DOSE PER 1 D
  4. PROPRANOLOL [Concomitant]
     Active Substance: PROPRANOLOL HYDROCHLORIDE
     Indication: Basedow^s disease
  5. POTASSIUM [Concomitant]
     Active Substance: POTASSIUM
     Indication: Hypokalaemia
     Dosage: INITIALLY CORRECTED WITH 60 MEQ
     Route: 048
  6. POTASSIUM [Concomitant]
     Active Substance: POTASSIUM
     Dosage: 20 MEQ  GIVEN OVER 8 H
     Route: 042

REACTIONS (1)
  - Mechanical urticaria [Recovered/Resolved]
